FAERS Safety Report 17868077 (Version 2)
Quarter: 2020Q2

REPORT INFORMATION
  Report Type: Report from Study
  Country: US (occurrence: US)
  Receive Date: 20200606
  Receipt Date: 20200625
  Transmission Date: 20200714
  Serious: Yes (Other)
  Sender: FDA-Public Use
  Company Number: US-ROCHE-2613622

PATIENT
  Sex: Female

DRUGS (9)
  1. NAPROXEN. [Concomitant]
     Active Substance: NAPROXEN
  2. FLUTICASONE. [Concomitant]
     Active Substance: FLUTICASONE
  3. DILTIAZEM. [Concomitant]
     Active Substance: DILTIAZEM
  4. METHOTREXATE. [Concomitant]
     Active Substance: METHOTREXATE
  5. CLOTRIMAZOLE. [Concomitant]
     Active Substance: CLOTRIMAZOLE
  6. LEVOTHYROXINE. [Concomitant]
     Active Substance: LEVOTHYROXINE
  7. RANITIDINE. [Concomitant]
     Active Substance: RANITIDINE
  8. ACTEMRA [Suspect]
     Active Substance: TOCILIZUMAB
     Indication: RHEUMATOID ARTHRITIS
     Route: 058
     Dates: start: 20190913
  9. ROSUVASTATIN. [Concomitant]
     Active Substance: ROSUVASTATIN

REACTIONS (4)
  - Muscular weakness [Unknown]
  - Facial paralysis [Unknown]
  - Speech disorder [Unknown]
  - Cerebrovascular accident [Unknown]
